FAERS Safety Report 8616926-9 (Version None)
Quarter: 2012Q3

REPORT INFORMATION
  Report Type: 
  Country: None (occurrence: None)
  Receive Date: 20120823
  Receipt Date: 20120811
  Transmission Date: 20120928
  Serious: No
  Sender: FDA-Public Use
  Company Number: US-009507513-1207USA002669

PATIENT

DRUGS (4)
  1. RIBASPHERE [Suspect]
     Dosage: 600 MG, BID
  2. VICTRELIS [Suspect]
     Indication: HEPATITIS C
     Dosage: 800 MG, Q8H
     Route: 048
     Dates: start: 20120301
  3. PEG-INTRON [Suspect]
     Dosage: 150 MICROGRAM, QW
     Route: 058
  4. PROZAC [Concomitant]

REACTIONS (2)
  - FATIGUE [None]
  - ANAEMIA [None]
